FAERS Safety Report 4830207-0 (Version None)
Quarter: 2005Q4

REPORT INFORMATION
  Report Type: 
  Country: None (occurrence: None)
  Receive Date: 20051117
  Receipt Date: 20050930
  Transmission Date: 20060501
  Serious: Yes (Hospitalization, Other)
  Sender: FDA-Public Use
  Company Number: US-MERCK-0510USA00740

PATIENT
  Age: 75 Year
  Sex: Female
  Weight: 91 kg

DRUGS (17)
  1. VIOXX [Suspect]
     Indication: ARTHRITIS
     Route: 048
     Dates: start: 20021111, end: 20031007
  2. ACETYLCYSTEINE [Concomitant]
     Route: 065
  3. ALPRAZOLAM [Concomitant]
     Route: 065
  4. ALTACE [Concomitant]
     Route: 065
  5. AVANDIA [Concomitant]
     Route: 065
  6. CAPTOPRIL [Concomitant]
     Route: 065
  7. EVISTA [Concomitant]
     Route: 065
  8. GEMFIBROZIL [Concomitant]
     Route: 065
  9. GLIPIZIDE [Concomitant]
     Route: 065
  10. GLUCOTROL [Concomitant]
     Route: 065
  11. HUMULIN [Concomitant]
     Route: 065
  12. MECLIZINE [Concomitant]
     Route: 065
  13. PLAVIX [Concomitant]
     Route: 065
  14. TOPROL-XL [Concomitant]
     Route: 065
  15. HYDROCHLOROTHIAZIDE AND TRIAMTERENE [Concomitant]
     Route: 065
  16. TRAMADOL HYDROCHLORIDE [Concomitant]
     Route: 065
  17. METFORMIN [Concomitant]
     Route: 065

REACTIONS (3)
  - DEPRESSION [None]
  - ISCHAEMIC STROKE [None]
  - MYOCARDIAL INFARCTION [None]
